FAERS Safety Report 6745145-6 (Version None)
Quarter: 2010Q2

REPORT INFORMATION
  Report Type: 
  Country: None (occurrence: None)
  Receive Date: 20100527
  Receipt Date: 20100519
  Transmission Date: 20101027
  Serious: Yes (Hospitalization)
  Sender: FDA-Public Use
  Company Number: JP-WATSON-2010-05393

PATIENT
  Age: 18 Year
  Sex: Female

DRUGS (6)
  1. FENTANYL CITRATE [Suspect]
     Indication: ANAESTHESIA
     Dosage: 45 MG, UNKNOWN
  2. FENTANYL CITRATE [Suspect]
     Indication: PAIN
  3. MORPHINE SULFATE INJ [Suspect]
     Indication: PAIN
     Dosage: 10 MG, CONTINUOUS INFUSION
     Route: 058
  4. HALOPERIDOL LACTATE [Suspect]
     Indication: SEDATION
     Dosage: 5 MG, SINGLE
     Route: 042
  5. DROPERIDOL [Suspect]
     Indication: PAIN
     Dosage: 2.5 MG, CONTINUOUS INFUSION
     Route: 058
  6. ROPIVACAINE HYDROCHLORIDE [Suspect]
     Indication: PAIN
     Dosage: 1 G, CONTINUOUS INFUSION
     Route: 058

REACTIONS (1)
  - CATATONIA [None]
